FAERS Safety Report 11243070 (Version 1)
Quarter: 2015Q3

REPORT INFORMATION
  Report Type: Spontaneous
  Country: US (occurrence: US)
  Receive Date: 20150707
  Receipt Date: 20150707
  Transmission Date: 20151125
  Serious: Yes (Other)
  Sender: FDA-Public Use
  Company Number: US-TARO PHARMACEUTICALS U.S.A., INC-2015SUN01566

PATIENT
  Age: 86 Year
  Sex: Male

DRUGS (1)
  1. ACETAZOLAMIDE. [Suspect]
     Active Substance: ACETAZOLAMIDE
     Indication: NORMAL PRESSURE HYDROCEPHALUS
     Dosage: 125 MG/DAY
     Route: 048

REACTIONS (2)
  - Off label use [Unknown]
  - Renal failure [Recovered/Resolved]
